FAERS Safety Report 6626162-3 (Version None)
Quarter: 2010Q1

REPORT INFORMATION
  Report Type: 
  Country: None (occurrence: None)
  Receive Date: 20100310
  Receipt Date: 20100226
  Transmission Date: 20100710
  Serious: Yes (Other)
  Sender: FDA-Public Use
  Company Number: PHHY2010DE11777

PATIENT
  Sex: Female

DRUGS (4)
  1. RASILEZ [Suspect]
     Dosage: 150 MG, BID
     Dates: start: 20090709
  2. RASILEZ [Suspect]
     Dosage: 150 MG, QD
     Dates: end: 20100222
  3. AMIODARONE HCL [Concomitant]
  4. BISOPROLOL [Concomitant]

REACTIONS (1)
  - ELECTROCARDIOGRAM QT PROLONGED [None]
